FAERS Safety Report 12740224 (Version 2)
Quarter: 2016Q4

REPORT INFORMATION
  Report Type: Spontaneous
  Country: US (occurrence: US)
  Receive Date: 20160913
  Receipt Date: 20161012
  Transmission Date: 20170207
  Serious: Yes (Hospitalization, Other)
  Sender: FDA-Public Use
  Company Number: US-SAOL THERAPEUTICS-2016SAO00567

PATIENT
  Age: 54 Year
  Sex: Male
  Weight: 63.49 kg

DRUGS (4)
  1. LIORESAL [Suspect]
     Active Substance: BACLOFEN
     Indication: MUSCLE SPASTICITY
  2. BACLOFEN. [Suspect]
     Active Substance: BACLOFEN
     Indication: MUSCLE SPASTICITY
     Dosage: 50 ?G, \DAY
     Route: 037
     Dates: start: 20120202
  3. BACLOFEN. [Suspect]
     Active Substance: BACLOFEN
     Indication: CEREBROVASCULAR ACCIDENT
  4. LIORESAL [Suspect]
     Active Substance: BACLOFEN
     Indication: CEREBROVASCULAR ACCIDENT
     Dosage: 994.4 ?G, \DAY
     Route: 037

REACTIONS (8)
  - Drug withdrawal syndrome [Not Recovered/Not Resolved]
  - Incision site pain [Recovered/Resolved]
  - Implant site extravasation [Unknown]
  - Device failure [Not Recovered/Not Resolved]
  - Therapeutic response unexpected [Unknown]
  - Blood sodium increased [Unknown]
  - Lethargy [Not Recovered/Not Resolved]
  - Eschar [Unknown]

NARRATIVE: CASE EVENT DATE: 2012
